FAERS Safety Report 9497029 (Version 2)
Quarter: 2013Q3

REPORT INFORMATION
  Report Type: Spontaneous
  Country: GB (occurrence: GB)
  Receive Date: 20130904
  Receipt Date: 20130917
  Transmission Date: 20140515
  Serious: Yes (Other)
  Sender: FDA-Public Use
  Company Number: GB-PFIZER INC-2013252999

PATIENT
  Age: 58 Year
  Sex: Male
  Weight: 88 kg

DRUGS (6)
  1. ATORVASTATIN [Suspect]
     Indication: HYPERCHOLESTEROLAEMIA
     Dosage: 20 MG, UNK
     Route: 048
     Dates: start: 2005, end: 2013
  2. OMEPRAZOLE [Concomitant]
     Indication: GASTROOESOPHAGEAL REFLUX DISEASE
     Dosage: 20 MG, UNK
     Route: 048
     Dates: start: 2005
  3. ACETYLSALICYLIC ACID [Concomitant]
     Indication: TRANSIENT ISCHAEMIC ATTACK
     Dosage: 75 MG, UNK
     Route: 048
     Dates: start: 2005
  4. AMLODIPINE [Concomitant]
     Indication: HYPERTENSION
     Dosage: 5 MG, UNK
     Route: 048
     Dates: start: 2005
  5. CO-CODAMOL [Concomitant]
     Indication: BACK PAIN
     Dosage: [CODEINE PHOSPHATE 30]/ [PARACETAMOL 500], UNK
     Route: 048
     Dates: start: 2005
  6. TAMSULOSIN [Concomitant]
     Indication: NEPHROLITHIASIS
     Dosage: 400 MG, UNK
     Route: 048
     Dates: start: 20130524

REACTIONS (6)
  - Insomnia [Recovered/Resolved]
  - Myalgia [Recovered/Resolved]
  - Lethargy [Recovered/Resolved]
  - Paraesthesia [Recovered/Resolved]
  - Formication [Recovered/Resolved]
  - Activities of daily living impaired [Recovered/Resolved]
